FAERS Safety Report 19262353 (Version 1)
Quarter: 2021Q2

REPORT INFORMATION
  Report Type: Other
  Country: CA (occurrence: CA)
  Receive Date: 20210516
  Receipt Date: 20210516
  Transmission Date: 20210717
  Serious: Yes (Hospitalization, Other)
  Sender: FDA-Public Use
  Company Number: CA-AA PHARMA INC.-2020AP011999

PATIENT
  Age: 50 Year
  Sex: Female
  Weight: 108 kg

DRUGS (33)
  1. AA?CLOZAPINE [Suspect]
     Active Substance: CLOZAPINE
     Dosage: 25 MG, Q.AM
     Route: 048
     Dates: start: 20200525, end: 20200601
  2. AA?CLOZAPINE [Suspect]
     Active Substance: CLOZAPINE
     Dosage: 25 MG, Q.H.S.
     Route: 048
     Dates: start: 20200524, end: 20200525
  3. VENTOLIN [Suspect]
     Active Substance: ALBUTEROL SULFATE
     Indication: PRODUCT USED FOR UNKNOWN INDICATION
     Dosage: UNK, QD (PRN 3?4 TIME DAILY)
     Route: 065
  4. RAMIPRIL. [Concomitant]
     Active Substance: RAMIPRIL
     Indication: PRODUCT USED FOR UNKNOWN INDICATION
     Dosage: 5 G, BID
     Route: 048
  5. PANTOPRAZOLE [Concomitant]
     Active Substance: PANTOPRAZOLE
     Indication: PRODUCT USED FOR UNKNOWN INDICATION
     Dosage: 40 MG, QD
     Route: 048
  6. CYCLOBENZAPRINE. [Concomitant]
     Active Substance: CYCLOBENZAPRINE
     Indication: PRODUCT USED FOR UNKNOWN INDICATION
     Dosage: 10 MG, TID
     Route: 048
  7. ABILIFY [Concomitant]
     Active Substance: ARIPIPRAZOLE
     Indication: PRODUCT USED FOR UNKNOWN INDICATION
     Dosage: UNK UNK, Q.M.T. (300 UNKNOWN UNIT ONE EVERY FOUR WEEK)
     Route: 030
  8. AA?CLOZAPINE [Suspect]
     Active Substance: CLOZAPINE
     Dosage: 62.5 MG, Q.H.S.
     Route: 048
     Dates: start: 20200529, end: 20200530
  9. GABAPENTIN. [Concomitant]
     Active Substance: GABAPENTIN
     Indication: PRODUCT USED FOR UNKNOWN INDICATION
     Dosage: 100 MG, TID
     Route: 048
  10. LOXAPINE. [Concomitant]
     Active Substance: LOXAPINE
     Indication: PRODUCT USED FOR UNKNOWN INDICATION
     Dosage: 20 MILLIGRAM, TID
     Route: 058
  11. AA?CLOZAPINE [Suspect]
     Active Substance: CLOZAPINE
     Dosage: UNK
     Route: 048
     Dates: start: 202005
  12. SALBUTAMOL [Suspect]
     Active Substance: ALBUTEROL
     Indication: PRODUCT USED FOR UNKNOWN INDICATION
     Dosage: UNK, QD
     Route: 065
  13. GLICAZIDA [Concomitant]
     Active Substance: GLICLAZIDE
     Indication: PRODUCT USED FOR UNKNOWN INDICATION
     Dosage: 90 MG, QD
     Route: 048
  14. AA?CLOZAPINE [Suspect]
     Active Substance: CLOZAPINE
     Indication: PSYCHOTIC DISORDER
     Dosage: 12.5 MG, Q.H.S.
     Route: 048
     Dates: start: 20200523, end: 20200523
  15. AA?CLOZAPINE [Suspect]
     Active Substance: CLOZAPINE
     Dosage: 75 MG, Q.H.S.
     Route: 048
     Dates: start: 20200531
  16. SYNTHROID [Concomitant]
     Active Substance: LEVOTHYROXINE SODIUM
     Indication: PRODUCT USED FOR UNKNOWN INDICATION
     Dosage: 275 ?G, QD
     Route: 048
  17. BENZTROPINE                        /00012901/ [Concomitant]
     Active Substance: BENZTROPINE
     Indication: PRODUCT USED FOR UNKNOWN INDICATION
     Dosage: 1 MG, Q.H.S.
     Route: 048
  18. BUPROPION. [Concomitant]
     Active Substance: BUPROPION
     Indication: PRODUCT USED FOR UNKNOWN INDICATION
     Dosage: 300 MG, Q.H.S.
     Route: 048
  19. MAGNESIUM [Concomitant]
     Active Substance: MAGNESIUM
     Indication: PRODUCT USED FOR UNKNOWN INDICATION
     Dosage: 200 MG, QD
     Route: 048
  20. ARIPIPRAZOLE. [Concomitant]
     Active Substance: ARIPIPRAZOLE
     Indication: PRODUCT USED FOR UNKNOWN INDICATION
     Dosage: 15 MG, Q.H.S.
     Route: 048
     Dates: start: 20200515, end: 20200528
  21. AA?CLOZAPINE [Suspect]
     Active Substance: CLOZAPINE
     Indication: SCHIZOPHRENIA
     Dosage: 12.5 MG, Q.AM
     Route: 048
     Dates: start: 20200523, end: 20200524
  22. METFORMIN [Concomitant]
     Active Substance: METFORMIN HYDROCHLORIDE
     Indication: PRODUCT USED FOR UNKNOWN INDICATION
     Dosage: 1 G, BID
     Route: 048
  23. AA?CLOZAPINE [Suspect]
     Active Substance: CLOZAPINE
     Dosage: 50 MG, Q.H.S.
     Route: 048
     Dates: start: 20200526, end: 20200528
  24. LOXAPINE. [Concomitant]
     Active Substance: LOXAPINE
     Indication: PRODUCT USED FOR UNKNOWN INDICATION
     Dosage: 10 MG, BID
     Route: 048
     Dates: start: 20200522, end: 20200525
  25. ATORVASTATIN [Concomitant]
     Active Substance: ATORVASTATIN
     Indication: PRODUCT USED FOR UNKNOWN INDICATION
     Dosage: 80 MG, QD
     Route: 048
  26. VALPROATE SEMISODIUM [Concomitant]
     Active Substance: DIVALPROEX SODIUM
     Indication: PRODUCT USED FOR UNKNOWN INDICATION
     Dosage: 2000 MILLIGRAM, QD
     Route: 048
  27. LOXAPINE. [Concomitant]
     Active Substance: LOXAPINE
     Dosage: 10 MG, Q.H.S.
     Route: 048
     Dates: start: 20200526, end: 20200526
  28. ARIPIPRAZOLE. [Concomitant]
     Active Substance: ARIPIPRAZOLE
     Indication: PRODUCT USED FOR UNKNOWN INDICATION
     Dosage: 400 MG, Q.M.T.
     Route: 030
  29. DILTIAZEM. [Concomitant]
     Active Substance: DILTIAZEM
     Indication: PRODUCT USED FOR UNKNOWN INDICATION
     Dosage: 240 MG, QD
     Route: 048
  30. AA?CLOZAPINE [Suspect]
     Active Substance: CLOZAPINE
     Indication: SCHIZOAFFECTIVE DISORDER
     Dosage: 12.5 MG, Q.H.S.
     Route: 048
     Dates: start: 20200522, end: 20200522
  31. LOXAPINE. [Concomitant]
     Active Substance: LOXAPINE
     Dosage: 5 MG, Q.H.S.
     Route: 048
     Dates: start: 20200527, end: 20200527
  32. FLUTICASONE. [Concomitant]
     Active Substance: FLUTICASONE
     Indication: PRODUCT USED FOR UNKNOWN INDICATION
     Dosage: 125 ?G, BID (2 PUFFS)
     Route: 065
  33. DIVALPROEX [Concomitant]
     Active Substance: DIVALPROEX SODIUM
     Indication: PRODUCT USED FOR UNKNOWN INDICATION
     Dosage: 2000 MG, Q.H.S.
     Route: 048

REACTIONS (4)
  - White blood cell count increased [Not Recovered/Not Resolved]
  - Adrenal neoplasm [Not Recovered/Not Resolved]
  - Dizziness [Not Recovered/Not Resolved]
  - C-reactive protein increased [Not Recovered/Not Resolved]

NARRATIVE: CASE EVENT DATE: 20200527
